FAERS Safety Report 25876247 (Version 1)
Quarter: 2025Q4

REPORT INFORMATION
  Report Type: Spontaneous
  Country: US (occurrence: US)
  Receive Date: 20251003
  Receipt Date: 20251003
  Transmission Date: 20260117
  Serious: Yes (Other)
  Sender: ROCHE
  Company Number: US-BoehringerIngelheim-2025-BI-097456

PATIENT
  Age: 65 Year
  Sex: Female

DRUGS (2)
  1. ALTEPLASE [Suspect]
     Active Substance: ALTEPLASE
     Indication: Product used for unknown indication
     Route: 042
  2. ALTEPLASE [Suspect]
     Active Substance: ALTEPLASE
     Dosage: OVER 60 MIN
     Route: 042

REACTIONS (4)
  - Vitreous haemorrhage [Recovered/Resolved]
  - Retinal tear [Unknown]
  - Retinal detachment [Unknown]
  - Visual impairment [Recovering/Resolving]
